FAERS Safety Report 9718720 (Version 1)
Quarter: 2013Q4

REPORT INFORMATION
  Report Type: Not Available
  Country: US (occurrence: US)
  Receive Date: 20131125
  Receipt Date: 20131125
  Transmission Date: 20140711
  Serious: Yes (Other)
  Sender: FDA-Public Use
  Company Number: US-H. LUNDBECK A/S-DKLU1093196

PATIENT
  Sex: Male

DRUGS (5)
  1. ONFI [Suspect]
     Indication: LENNOX-GASTAUT SYNDROME
     Dates: end: 20130812
  2. ONFI [Suspect]
     Dates: start: 20130814
  3. KEPPRA [Concomitant]
     Indication: PRODUCT USED FOR UNKNOWN INDICATION
  4. TEGRETOL [Concomitant]
     Indication: PRODUCT USED FOR UNKNOWN INDICATION
  5. ZONEGRAN [Concomitant]
     Indication: PRODUCT USED FOR UNKNOWN INDICATION

REACTIONS (3)
  - Convulsion [Unknown]
  - Masked facies [Not Recovered/Not Resolved]
  - Abdominal pain upper [Not Recovered/Not Resolved]
